FAERS Safety Report 21195862 (Version 1)
Quarter: 2022Q3

REPORT INFORMATION
  Report Type: Spontaneous
  Country: US (occurrence: None)
  Receive Date: 20220810
  Receipt Date: 20220810
  Transmission Date: 20221027
  Serious: Yes (Hospitalization)
  Sender: FDA-Public Use
  Company Number: None

PATIENT
  Age: 49 Year
  Sex: Female
  Weight: 49.5 kg

DRUGS (3)
  1. PEG-3350\SODIUM CHLORIDE\SODIUM BICARBONATE\POTASSIUM CHLORIDE [Suspect]
     Active Substance: POLYETHYLENE GLYCOL 3350\POTASSIUM CHLORIDE\SODIUM BICARBONATE\SODIUM CHLORIDE
     Indication: Colonoscopy
     Dosage: OTHER QUANTITY : 1 OUNCE(S);?FREQUENCY : TWICE A DAY;?
     Route: 048
     Dates: start: 20220807, end: 20220807
  2. VITAMIN C [Concomitant]
     Active Substance: ASCORBIC ACID
  3. VITAMINS [Concomitant]
     Active Substance: VITAMINS

REACTIONS (17)
  - Abdominal distension [None]
  - Muscle tightness [None]
  - Nausea [None]
  - Muscular weakness [None]
  - Hypoaesthesia [None]
  - Fall [None]
  - Loss of consciousness [None]
  - Gait inability [None]
  - Hyperhidrosis [None]
  - Vomiting [None]
  - Cold sweat [None]
  - Paraesthesia [None]
  - Blood pressure decreased [None]
  - Hyponatraemia [None]
  - Pain in extremity [None]
  - Syncope [None]
  - Dehydration [None]

NARRATIVE: CASE EVENT DATE: 20220807
